FAERS Safety Report 24667163 (Version 1)
Quarter: 2024Q4

REPORT INFORMATION
  Report Type: Spontaneous
  Country: BR (occurrence: BR)
  Receive Date: 20241126
  Receipt Date: 20241126
  Transmission Date: 20250115
  Serious: Yes (Other)
  Sender: NOVO NORDISK
  Company Number: BR-NOVOPROD-906739

PATIENT
  Age: 50 Year
  Sex: Female
  Weight: 98.4 kg

DRUGS (1)
  1. INSULIN HUMAN [Suspect]
     Active Substance: INSULIN HUMAN
     Indication: Type 2 diabetes mellitus
     Dosage: UNK
     Route: 065
     Dates: start: 2017

REACTIONS (2)
  - Spinal operation [Unknown]
  - Neuralgia [Unknown]

NARRATIVE: CASE EVENT DATE: 20220201
